FAERS Safety Report 7633549-9 (Version None)
Quarter: 2011Q3

REPORT INFORMATION
  Report Type: 
  Country: None (occurrence: None)
  Receive Date: 20110725
  Receipt Date: 20110705
  Transmission Date: 20111222
  Serious: Yes (Hospitalization)
  Sender: FDA-Public Use
  Company Number: US-GLAXOSMITHKLINE-A0748243A

PATIENT
  Age: 72 Year
  Sex: Female
  Weight: 127 kg

DRUGS (7)
  1. AVANDIA [Suspect]
     Indication: DIABETES MELLITUS
     Dosage: 8MG PER DAY
     Route: 048
     Dates: start: 20020715, end: 20070101
  2. HYDROCHLOROTHIAZIDE [Concomitant]
  3. AMITRIPTYLINE HCL [Concomitant]
  4. ARTHROTEC [Concomitant]
  5. COREG [Concomitant]
  6. ZOCOR [Concomitant]
  7. GLUCOTROL [Concomitant]

REACTIONS (2)
  - MYOCARDIAL INFARCTION [None]
  - HEART INJURY [None]
